FAERS Safety Report 9437222 (Version 1)
Quarter: 2013Q3

REPORT INFORMATION
  Report Type: Spontaneous
  Country: DE (occurrence: DE)
  Receive Date: 20130802
  Receipt Date: 20130802
  Transmission Date: 20140515
  Serious: Yes (Life-Threatening, Hospitalization)
  Sender: FDA-Public Use
  Company Number: DE-BAYER-2013-092466

PATIENT
  Sex: Female
  Weight: 100 kg

DRUGS (1)
  1. ULTRAVIST [Suspect]
     Indication: COLON CANCER
     Dosage: 150 ML, ONCE
     Route: 042

REACTIONS (5)
  - Feeling hot [Not Recovered/Not Resolved]
  - Loss of consciousness [Not Recovered/Not Resolved]
  - Aspiration [Not Recovered/Not Resolved]
  - Respiratory disorder [Not Recovered/Not Resolved]
  - Convulsion [Not Recovered/Not Resolved]
